FAERS Safety Report 9437662 (Version 1)
Quarter: 2013Q3

REPORT INFORMATION
  Report Type: Spontaneous
  Country: GB (occurrence: GB)
  Receive Date: 20130802
  Receipt Date: 20130802
  Transmission Date: 20140515
  Serious: Yes (Other)
  Sender: FDA-Public Use
  Company Number: PHHY2013GB079454

PATIENT
  Age: 83 Year
  Sex: Male
  Weight: 86 kg

DRUGS (22)
  1. AMOXICILLIN [Suspect]
     Dosage: UNK
     Dates: start: 20130513, end: 20130518
  2. AMOXICILLIN [Suspect]
     Dosage: UNK
     Dates: start: 20130704
  3. DOXAZOSIN [Concomitant]
     Dates: start: 20130222
  4. LACIDIPINE [Concomitant]
     Dates: start: 20130222
  5. RAMIPRIL [Concomitant]
     Dates: start: 20130222
  6. SIMVASTATIN [Concomitant]
     Dates: start: 20130222
  7. CETIRIZINE [Concomitant]
     Dates: start: 20130419, end: 20130517
  8. CETIRIZINE [Concomitant]
     Dates: start: 20130614, end: 20130712
  9. CLOPIDOGREL [Concomitant]
     Dates: start: 20130419, end: 20130517
  10. CLOPIDOGREL [Concomitant]
     Dates: start: 20130614, end: 20130712
  11. FINASTERIDE [Concomitant]
     Dates: start: 20130419
  12. FLUTICASONE [Concomitant]
     Dates: start: 20130412, end: 20130517
  13. FLUTICASONE [Concomitant]
     Dates: start: 20130614, end: 20130712
  14. LANSOPRAZOLE [Concomitant]
     Dates: start: 20130419, end: 20130517
  15. LANSOPRAZOLE [Concomitant]
     Dates: start: 20130614, end: 20130712
  16. SODIUM CROMOGLICATE [Concomitant]
     Dates: start: 20130419, end: 20130517
  17. SODIUM CROMOGLICATE [Concomitant]
     Dates: start: 20130614, end: 20130712
  18. GAVISCON [Concomitant]
     Dates: start: 20130419, end: 20130517
  19. SALBUTAMOL [Concomitant]
     Dates: start: 20130419, end: 20130517
  20. INDOMETACIN [Concomitant]
     Dates: start: 20130430, end: 20130528
  21. INDOMETACIN [Concomitant]
     Dates: start: 20130613, end: 20130711
  22. FLUCLOXACILLIN [Concomitant]
     Dates: start: 20130509, end: 20130516

REACTIONS (2)
  - Dysphagia [Recovering/Resolving]
  - Pharyngeal oedema [Unknown]
